FAERS Safety Report 24589816 (Version 1)
Quarter: 2024Q4

REPORT INFORMATION
  Report Type: Report from Study
  Country: ZA (occurrence: ZA)
  Receive Date: 20241107
  Receipt Date: 20241107
  Transmission Date: 20250115
  Serious: Yes (Death, Other)
  Sender: ALEXION PHARMACEUTICALS
  Company Number: ZA-AstraZeneca-CH-00733648A

PATIENT
  Age: 82 Year

DRUGS (22)
  1. DAPAGLIFLOZIN [Suspect]
     Active Substance: DAPAGLIFLOZIN
  2. DAPAGLIFLOZIN [Suspect]
     Active Substance: DAPAGLIFLOZIN
  3. DAPAGLIFLOZIN [Suspect]
     Active Substance: DAPAGLIFLOZIN
  4. DAPAGLIFLOZIN [Suspect]
     Active Substance: DAPAGLIFLOZIN
  5. RIVAROXABAN [Concomitant]
     Active Substance: RIVAROXABAN
  6. RIVAROXABAN [Concomitant]
     Active Substance: RIVAROXABAN
     Route: 065
  7. Spiractin [Concomitant]
  8. Spiractin [Concomitant]
     Route: 065
  9. ERGOCALCIFEROL [Concomitant]
     Active Substance: ERGOCALCIFEROL
  10. ERGOCALCIFEROL [Concomitant]
     Active Substance: ERGOCALCIFEROL
     Route: 065
  11. CARVEDILOL [Concomitant]
     Active Substance: CARVEDILOL
  12. CARVEDILOL [Concomitant]
     Active Substance: CARVEDILOL
     Route: 065
  13. AMOCARZINE [Concomitant]
  14. AMOCARZINE [Concomitant]
     Route: 065
  15. FUROSEMIDE [Concomitant]
     Active Substance: FUROSEMIDE
  16. FUROSEMIDE [Concomitant]
     Active Substance: FUROSEMIDE
     Route: 065
  17. RIVAROXABAN [Concomitant]
     Active Substance: RIVAROXABAN
  18. RIVAROXABAN [Concomitant]
     Active Substance: RIVAROXABAN
     Route: 065
  19. Sinupret plus [Concomitant]
  20. Sinupret plus [Concomitant]
     Route: 065
  21. Betadexamine [Concomitant]
  22. Betadexamine [Concomitant]
     Route: 065

REACTIONS (2)
  - Death [Fatal]
  - Malaise [Unknown]
